FAERS Safety Report 12148286 (Version 2)
Quarter: 2016Q2

REPORT INFORMATION
  Report Type: Spontaneous
  Country: US (occurrence: US)
  Receive Date: 20160304
  Receipt Date: 20160504
  Transmission Date: 20160815
  Serious: Yes (Other)
  Sender: FDA-Public Use
  Company Number: US-ENDO PHARMACEUTICALS INC.-2016-001605

PATIENT
  Age: 64 Year
  Sex: Female

DRUGS (10)
  1. AMITRIPTYLINE HCL 10MG [Suspect]
     Active Substance: AMITRIPTYLINE
     Indication: FIBROMYALGIA
  2. AMITRIPTYLINE HCL 10MG [Suspect]
     Active Substance: AMITRIPTYLINE
     Indication: INSOMNIA
     Route: 048
     Dates: start: 2011
  3. IBRANCE [Suspect]
     Active Substance: PALBOCICLIB
     Indication: BREAST CANCER METASTATIC
     Route: 048
     Dates: start: 20150612, end: 20160226
  4. CALCIUM [Concomitant]
     Active Substance: CALCIUM
     Indication: SUPPLEMENTATION THERAPY
     Route: 065
  5. LETROZOLE TABLETS 2.5MG [Suspect]
     Active Substance: LETROZOLE
     Indication: ANTIOESTROGEN THERAPY
  6. OSTEO BI-FLEX [Concomitant]
     Active Substance: CHONDROITIN SULFATE A\GLUCOSAMINE
     Indication: PRODUCT USED FOR UNKNOWN INDICATION
     Route: 065
  7. MULTIVITAMINS/MINERAL [Concomitant]
     Indication: SUPPLEMENTATION THERAPY
     Route: 065
  8. VITAMIN D3 [Concomitant]
     Active Substance: CHOLECALCIFEROL
     Indication: SUPPLEMENTATION THERAPY
     Route: 065
  9. IBRANCE [Suspect]
     Active Substance: PALBOCICLIB
     Indication: BREAST CANCER RECURRENT
     Route: 048
     Dates: start: 20160331
  10. LETROZOLE TABLETS 2.5MG [Suspect]
     Active Substance: LETROZOLE
     Indication: BREAST CANCER METASTATIC
     Route: 048
     Dates: start: 20150609

REACTIONS (5)
  - Colitis [Not Recovered/Not Resolved]
  - Gastrointestinal pain [Not Recovered/Not Resolved]
  - Anal incontinence [Not Recovered/Not Resolved]
  - Haematochezia [Not Recovered/Not Resolved]
  - Off label use [Not Recovered/Not Resolved]

NARRATIVE: CASE EVENT DATE: 2011
